FAERS Safety Report 11741321 (Version 2)
Quarter: 2015Q4

REPORT INFORMATION
  Report Type: Report from Study
  Country: JP (occurrence: JP)
  Receive Date: 20151116
  Receipt Date: 20151130
  Transmission Date: 20160304
  Serious: Yes (Hospitalization, Other)
  Sender: FDA-Public Use
  Company Number: JP-ROCHE-1661520

PATIENT
  Age: 7 Year
  Sex: Male

DRUGS (1)
  1. OMALIZUMAB [Suspect]
     Active Substance: OMALIZUMAB
     Indication: ASTHMA
     Route: 058
     Dates: start: 20150126

REACTIONS (3)
  - Upper respiratory tract inflammation [Unknown]
  - Asthma [Unknown]
  - Infection [Unknown]

NARRATIVE: CASE EVENT DATE: 201502
